FAERS Safety Report 9632925 (Version 1)
Quarter: 2013Q4

REPORT INFORMATION
  Report Type: Spontaneous
  Country: CN (occurrence: CN)
  Receive Date: 20131018
  Receipt Date: 20131018
  Transmission Date: 20140711
  Serious: Yes (Other)
  Sender: FDA-Public Use
  Company Number: CN-ASTRAZENECA-2013SE44118

PATIENT
  Age: 27759 Day
  Sex: Male
  Weight: 72 kg

DRUGS (1)
  1. ESOMEPRAZOLE SODIUM [Suspect]
     Indication: GASTRIC PH DECREASED
     Route: 041
     Dates: start: 20120820, end: 20120820

REACTIONS (3)
  - Asphyxia [Recovered/Resolved]
  - Chills [Recovered/Resolved]
  - Pyrexia [Recovered/Resolved]
